FAERS Safety Report 21059487 (Version 3)
Quarter: 2022Q3

REPORT INFORMATION
  Report Type: Report from Study
  Country: BR (occurrence: BR)
  Receive Date: 20220708
  Receipt Date: 20220823
  Transmission Date: 20221027
  Serious: Yes (Hospitalization)
  Sender: FDA-Public Use
  Company Number: BR-JNJFOC-20220706007

PATIENT
  Age: 11 Year
  Sex: Female
  Weight: 23.3 kg

DRUGS (2)
  1. INFLIXIMAB [Suspect]
     Active Substance: INFLIXIMAB
     Indication: Crohn^s disease
     Route: 041
     Dates: start: 20211105
  2. REMICADE [Suspect]
     Active Substance: INFLIXIMAB
     Indication: Crohn^s disease
     Dosage: LAST INFUSION ON 04-MAY-2022
     Route: 041
     Dates: start: 20211105

REACTIONS (3)
  - Fistula [Not Recovered/Not Resolved]
  - Crohn^s disease [Recovering/Resolving]
  - Product dose omission issue [Unknown]
